FAERS Safety Report 6210986-0 (Version None)
Quarter: 2009Q2

REPORT INFORMATION
  Report Type: 
  Country: None (occurrence: None)
  Receive Date: 20090528
  Receipt Date: 20090528
  Transmission Date: 20091009
  Serious: No
  Sender: FDA-Public Use
  Company Number: None

PATIENT
  Age: 39 Year
  Sex: Male
  Weight: 2.7216 kg

DRUGS (1)
  1. CYMBALTA [Suspect]
     Indication: ANXIETY
     Dosage: 120 MG 1 TIME DAILY PO
     Route: 048
     Dates: start: 20090116, end: 20090523

REACTIONS (7)
  - ARTHRALGIA [None]
  - DRUG WITHDRAWAL SYNDROME [None]
  - FATIGUE [None]
  - HEPATIC ENZYME INCREASED [None]
  - INSOMNIA [None]
  - MOOD ALTERED [None]
  - PARAESTHESIA [None]
